FAERS Safety Report 4508981-2 (Version None)
Quarter: 2004Q4

REPORT INFORMATION
  Report Type: 
  Country: None (occurrence: None)
  Receive Date: 20041122
  Receipt Date: 20041122
  Transmission Date: 20050328
  Serious: Yes (Hospitalization)
  Sender: FDA-Public Use
  Company Number: None

PATIENT
  Age: 76 Year
  Sex: Male
  Weight: 73.6 kg

DRUGS (2)
  1. TRIAMETERENE AND HYDROCHLOROTHIAZIDE [Suspect]
     Indication: BLOOD PRESSURE
     Dosage: 50 MG 1/2 TA Q DAILY ORAL
     Route: 048
     Dates: start: 20040423, end: 20041106
  2. DICLOFENAC 50 GM [Suspect]
     Indication: ARTHRALGIA
     Dosage: 50 MG BID ORAL
     Route: 048
     Dates: start: 20041102, end: 20041105

REACTIONS (2)
  - RENAL FAILURE ACUTE [None]
  - RENAL TUBULAR NECROSIS [None]
